FAERS Safety Report 9942338 (Version 3)
Quarter: 2014Q1

REPORT INFORMATION
  Report Type: Report from Study
  Country: US (occurrence: US)
  Receive Date: 20140303
  Receipt Date: 20140324
  Transmission Date: 20141002
  Serious: No
  Sender: FDA-Public Use
  Company Number: US-VERTEX PHARMACEUTICALS INC-2014-000864

PATIENT
  Age: 12 Year
  Sex: Female

DRUGS (2)
  1. VX-770 [Suspect]
     Indication: CYSTIC FIBROSIS
     Dosage: 150 MG, UNK
     Dates: start: 20120214, end: 20140211
  2. VX-770 [Suspect]
     Dosage: UNK
     Dates: start: 20140219

REACTIONS (3)
  - Malaise [Unknown]
  - Chest discomfort [Unknown]
  - Musculoskeletal discomfort [Unknown]
